FAERS Safety Report 7541610-2 (Version None)
Quarter: 2011Q2

REPORT INFORMATION
  Report Type: 
  Country: None (occurrence: None)
  Receive Date: 20110603
  Receipt Date: 20110523
  Transmission Date: 20111010
  Serious: Yes (Life-Threatening, Other)
  Sender: FDA-Public Use
  Company Number: CL-314-2011

PATIENT
  Age: 85 Year
  Sex: Female

DRUGS (2)
  1. CLARITHROMYCIN [Suspect]
     Indication: LOWER RESPIRATORY TRACT INFECTION
     Dosage: 500 MG, BID, ORAL
     Route: 048
     Dates: start: 20110323, end: 20110326
  2. METRONIDAZOLE [Suspect]
     Dosage: 400 MG, TDS, ORAL
     Route: 048
     Dates: end: 20110326

REACTIONS (1)
  - ENCEPHALITIS [None]
